FAERS Safety Report 8866521 (Version 1)
Quarter: 2012Q4

REPORT INFORMATION
  Report Type: 
  Country: US (occurrence: US)
  Receive Date: 20121025
  Receipt Date: 20121025
  Transmission Date: 20130627
  Serious: Yes (Disabling, Other)
  Sender: FDA-Public Use
  Company Number: US-ABBOTT-12P-163-0910286-00

PATIENT
  Sex: Female
  Weight: 72.64 kg

DRUGS (7)
  1. LUPRON DEPOT 3.75 MG [Suspect]
     Indication: UTERINE LEIOMYOMA
     Dates: start: 2005, end: 2005
  2. LUPRON DEPOT 3.75 MG [Suspect]
     Dates: start: 201112
  3. OCELLA [Suspect]
     Indication: VAGINAL HAEMORRHAGE
     Dates: start: 200910, end: 201110
  4. SYNTHROID [Concomitant]
     Indication: THYROID DISORDER
  5. IRON [Concomitant]
     Indication: MINERAL SUPPLEMENTATION
  6. TUMS [Concomitant]
     Indication: PRODUCT USED FOR UNKNOWN INDICATION
  7. HAIR AND NAIL VITAMIN [Concomitant]
     Indication: VITAMIN SUPPLEMENTATION

REACTIONS (4)
  - Thrombosis [Unknown]
  - Visual impairment [Unknown]
  - Uterine leiomyoma [Unknown]
  - Uterine leiomyoma [Unknown]
